FAERS Safety Report 4364488-7 (Version None)
Quarter: 2004Q2

REPORT INFORMATION
  Report Type: 
  Country: None (occurrence: None)
  Receive Date: 20040521
  Receipt Date: 20040514
  Transmission Date: 20050107
  Serious: Yes (Death)
  Sender: FDA-Public Use
  Company Number: US-JNJFOC-20040204448

PATIENT
  Age: 45 Year
  Sex: Male
  Weight: 48.0813 kg

DRUGS (7)
  1. DURAGESIC [Suspect]
     Indication: PAIN
     Dosage: 75 UG/HR, 1 IN 72 HOUR, TRANSDERMAL
     Route: 062
     Dates: start: 20040204, end: 20040209
  2. POTASSIUM (POTASSIUM) [Concomitant]
  3. ROCEPHIN [Concomitant]
  4. PHENERGAN [Concomitant]
  5. MYCELEX [Concomitant]
  6. MORPHINE SUL INJ [Concomitant]
  7. ASH (LORAZEPAM) [Concomitant]

REACTIONS (1)
  - AIDS RELATED COMPLICATION [None]
